FAERS Safety Report 7941391-4 (Version None)
Quarter: 2011Q4

REPORT INFORMATION
  Report Type: 
  Country: None (occurrence: None)
  Receive Date: 20111122
  Receipt Date: 20111107
  Transmission Date: 20120403
  Serious: Yes (Life-Threatening, Hospitalization)
  Sender: FDA-Public Use
  Company Number: 11-743

PATIENT
  Age: 13 Month
  Sex: Male
  Weight: 10 kg

DRUGS (1)
  1. DIPHENHYDRAMINE, 25 MG, UNK [Suspect]
     Dosage: 20 DF, ONCE, ORAL
     Route: 048

REACTIONS (18)
  - CONVULSION [None]
  - SOMNOLENCE [None]
  - RESPIRATORY RATE INCREASED [None]
  - HYPOTENSION [None]
  - ACCIDENTAL DRUG INTAKE BY CHILD [None]
  - MYDRIASIS [None]
  - HAEMATOCRIT DECREASED [None]
  - PUPILLARY REFLEX IMPAIRED [None]
  - DRY SKIN [None]
  - STATUS EPILEPTICUS [None]
  - ELECTROCARDIOGRAM QRS COMPLEX PROLONGED [None]
  - HYPERKINESIA [None]
  - DEPRESSED LEVEL OF CONSCIOUSNESS [None]
  - TACHYCARDIA [None]
  - DIALYSIS [None]
  - ELECTROCARDIOGRAM QRS COMPLEX SHORTENED [None]
  - WHITE BLOOD CELL COUNT INCREASED [None]
  - ATRIAL FLUTTER [None]
